FAERS Safety Report 8354828-6 (Version None)
Quarter: 2012Q2

REPORT INFORMATION
  Report Type: 
  Country: None (occurrence: None)
  Receive Date: 20120510
  Receipt Date: 20120503
  Transmission Date: 20120825
  Serious: Yes (Hospitalization)
  Sender: FDA-Public Use
  Company Number: 2012HGS-003598

PATIENT
  Age: 29 Year
  Sex: Female
  Weight: 113.3993 kg

DRUGS (5)
  1. BENLYSTA [Suspect]
     Indication: SYSTEMIC LUPUS ERYTHEMATOSUS
     Dosage: 1 IN 28 D, INTRAVENOUS DRIP
     Route: 041
     Dates: start: 20120423
  2. AMBIEN [Concomitant]
  3. PLAQUENIL (HYDROXYCHLOROQUINE PHOSPHATE) (HYDROXYCHLOROQUINE PHOSPHATE [Concomitant]
  4. VICODIN (VICODIN) (PARACETAMOL, HYDROCODONE BITARTRATE) [Concomitant]
  5. FLEXERIL (CYCLOBENZAPRINE HYDROCHLORIDE) (CYCLOBENZAPRINE HYDROCHLORID [Concomitant]

REACTIONS (8)
  - OEDEMA PERIPHERAL [None]
  - VOMITING [None]
  - FLATULENCE [None]
  - PAIN [None]
  - CHEST PAIN [None]
  - FATIGUE [None]
  - PAIN IN EXTREMITY [None]
  - DIZZINESS [None]
